FAERS Safety Report 25112566 (Version 1)
Quarter: 2025Q1

REPORT INFORMATION
  Report Type: Spontaneous
  Country: US (occurrence: US)
  Receive Date: 20250324
  Receipt Date: 20250324
  Transmission Date: 20250408
  Serious: Yes (Hospitalization, Other)
  Sender: TORRENT PHARMA INC.
  Company Number: US-TORRENT-00014269

PATIENT
  Age: 78 Year
  Sex: Male

DRUGS (2)
  1. APIXABAN [Suspect]
     Active Substance: APIXABAN
     Indication: Deep vein thrombosis
     Route: 065
  2. ASPIRIN [Suspect]
     Active Substance: ASPIRIN
     Indication: Product used for unknown indication
     Route: 065

REACTIONS (8)
  - Hypotension [Unknown]
  - Pulmonary embolism [Unknown]
  - Treatment failure [Unknown]
  - Syncope [Unknown]
  - Haemoglobin decreased [Unknown]
  - Haematoma [Unknown]
  - Shock haemorrhagic [Unknown]
  - Condition aggravated [Unknown]
